FAERS Safety Report 9871669 (Version 1)
Quarter: 2014Q1

REPORT INFORMATION
  Report Type: Spontaneous
  Country: US (occurrence: US)
  Receive Date: 20140205
  Receipt Date: 20140205
  Transmission Date: 20141002
  Serious: No
  Sender: FDA-Public Use
  Company Number: US-SA-2013SA118922

PATIENT
  Age: 28 Month
  Sex: Male

DRUGS (2)
  1. ALLEGRA [Suspect]
     Indication: RHINORRHOEA
     Route: 048
     Dates: start: 20131113
  2. ALLEGRA [Suspect]
     Indication: LACRIMATION INCREASED
     Route: 048
     Dates: start: 20131113

REACTIONS (2)
  - Somnolence [Not Recovered/Not Resolved]
  - Drug administration error [Unknown]
